FAERS Safety Report 16018229 (Version 1)
Quarter: 2019Q1

REPORT INFORMATION
  Report Type: Spontaneous
  Country: ES (occurrence: ES)
  Receive Date: 20190228
  Receipt Date: 20190228
  Transmission Date: 20190418
  Serious: Yes (Hospitalization)
  Sender: FDA-Public Use
  Company Number: ES-ASTRAZENECA-2019SE30153

PATIENT
  Sex: Male

DRUGS (4)
  1. CO-DIOVAN FORTE [Suspect]
     Active Substance: HYDROCHLOROTHIAZIDE\VALSARTAN
     Route: 048
     Dates: start: 20101029, end: 20181208
  2. OMEPRAZOLE. [Suspect]
     Active Substance: OMEPRAZOLE
     Route: 048
     Dates: start: 20110809
  3. OP1896 - LAXANTE (CALCIUM CARBONATE\CHONDRUS CRISPUS\PHENOLPHTHALEIN) [Suspect]
     Active Substance: CALCIUM CARBONATE\CHONDRUS CRISPUS\PHENOLPHTHALEIN
     Route: 065
     Dates: start: 20181204, end: 201812
  4. VANDRAL RETARD [Suspect]
     Active Substance: VENLAFAXINE HYDROCHLORIDE
     Route: 048
     Dates: start: 20181203, end: 20181208

REACTIONS (2)
  - Syncope [Recovered/Resolved]
  - Hyponatraemia [Recovered/Resolved]

NARRATIVE: CASE EVENT DATE: 20181206
